FAERS Safety Report 14947511 (Version 3)
Quarter: 2018Q4

REPORT INFORMATION
  Report Type: Spontaneous
  Country: US (occurrence: US)
  Receive Date: 20180529
  Receipt Date: 20181120
  Transmission Date: 20190204
  Serious: Yes (Other)
  Sender: FDA-Public Use
  Company Number: US-BAUSCH-BL-2018-014725

PATIENT
  Age: 8 Year
  Sex: Male
  Weight: 24.97 kg

DRUGS (2)
  1. IRON [Concomitant]
     Active Substance: IRON
     Indication: PRODUCT USED FOR UNKNOWN INDICATION
  2. APRISO [Suspect]
     Active Substance: MESALAMINE
     Indication: COLITIS ULCERATIVE
     Dosage: FOUR CAPSULES OPENED AND THE CONTENTS SPRINKLED ON APPLESAUCE EVERY MORNING
     Route: 048
     Dates: start: 20180330

REACTIONS (4)
  - Product residue present [Not Recovered/Not Resolved]
  - Clostridium difficile infection [Recovered/Resolved]
  - Wrong technique in product usage process [Not Recovered/Not Resolved]
  - Product size issue [Not Recovered/Not Resolved]

NARRATIVE: CASE EVENT DATE: 20180330
